FAERS Safety Report 9053874 (Version 4)
Quarter: 2013Q1

REPORT INFORMATION
  Report Type: Spontaneous
  Country: JP (occurrence: JP)
  Receive Date: 20130206
  Receipt Date: 20130328
  Transmission Date: 20140127
  Serious: Yes (Hospitalization, Other)
  Sender: FDA-Public Use
  Company Number: JP-JNJFOC-20130116597

PATIENT
  Age: 53 None
  Sex: Female
  Weight: 43 kg

DRUGS (29)
  1. REMICADE [Suspect]
     Indication: RHEUMATOID ARTHRITIS
     Route: 042
     Dates: start: 20060719
  2. REMICADE [Suspect]
     Indication: RHEUMATOID ARTHRITIS
     Route: 042
     Dates: start: 20080312
  3. REMICADE [Suspect]
     Indication: RHEUMATOID ARTHRITIS
     Route: 042
     Dates: start: 20080116
  4. REMICADE [Suspect]
     Indication: RHEUMATOID ARTHRITIS
     Route: 042
     Dates: start: 20071121
  5. REMICADE [Suspect]
     Indication: RHEUMATOID ARTHRITIS
     Route: 042
     Dates: start: 20070926
  6. REMICADE [Suspect]
     Indication: RHEUMATOID ARTHRITIS
     Route: 042
     Dates: start: 20070730
  7. REMICADE [Suspect]
     Indication: RHEUMATOID ARTHRITIS
     Route: 042
     Dates: start: 20070607
  8. REMICADE [Suspect]
     Indication: RHEUMATOID ARTHRITIS
     Route: 042
     Dates: start: 20070411
  9. REMICADE [Suspect]
     Indication: RHEUMATOID ARTHRITIS
     Route: 042
     Dates: start: 20070214
  10. REMICADE [Suspect]
     Indication: RHEUMATOID ARTHRITIS
     Route: 042
     Dates: start: 20061220
  11. REMICADE [Suspect]
     Indication: RHEUMATOID ARTHRITIS
     Route: 042
     Dates: start: 20061025
  12. REMICADE [Suspect]
     Indication: RHEUMATOID ARTHRITIS
     Route: 042
     Dates: start: 20060831
  13. REMICADE [Suspect]
     Indication: RHEUMATOID ARTHRITIS
     Route: 042
     Dates: start: 20060801
  14. REMICADE [Suspect]
     Indication: RHEUMATOID ARTHRITIS
     Dosage: 15TH INFUSION
     Route: 042
     Dates: start: 20080702, end: 200808
  15. METOLATE [Suspect]
     Indication: RHEUMATOID ARTHRITIS
     Route: 065
  16. PREDNISOLONE [Suspect]
     Indication: RHEUMATOID ARTHRITIS
     Route: 048
     Dates: start: 20090101
  17. PREDNISOLONE [Suspect]
     Indication: RHEUMATOID ARTHRITIS
     Route: 048
     Dates: end: 200901
  18. RHEUMATREX [Concomitant]
     Indication: RHEUMATOID ARTHRITIS
     Dosage: 8 MG/W
     Route: 048
  19. ACTARIT [Concomitant]
     Route: 048
  20. ESTAZOLAM [Concomitant]
     Route: 048
  21. LEDOLPER [Concomitant]
     Route: 048
  22. BONALON [Concomitant]
     Dosage: 35 MG/W
     Route: 048
  23. ZANTAC [Concomitant]
     Route: 048
  24. LOBU [Concomitant]
     Dosage: 1 TAB
     Route: 048
  25. VOLTAREN [Concomitant]
     Route: 048
  26. CALCIUM ASPARTATE [Concomitant]
     Route: 048
  27. BENFOTIAMINE [Concomitant]
     Dosage: 3 CAPSULES PERDAY
     Route: 048
  28. METHYCOBAL [Concomitant]
     Dosage: DAILY DOSE: 1500 DF
     Route: 048
  29. MARZULENE [Concomitant]
     Route: 048

REACTIONS (6)
  - Post procedural infection [Recovering/Resolving]
  - Chest X-ray abnormal [Unknown]
  - Foreign body reaction [Unknown]
  - Osteolysis [Unknown]
  - Device related infection [Recovered/Resolved]
  - Pneumothorax [Unknown]
